FAERS Safety Report 5877373-6 (Version None)
Quarter: 2008Q3

REPORT INFORMATION
  Report Type: 
  Country: None (occurrence: None)
  Receive Date: 20080908
  Receipt Date: 20080822
  Transmission Date: 20090109
  Serious: Yes (Other)
  Sender: FDA-Public Use
  Company Number: 8036650

PATIENT
  Sex: Female

DRUGS (2)
  1. KEPPRA [Suspect]
     Indication: EPILEPSY
     Dosage: 500 MG 2/D PO
     Route: 048
  2. TEGRETOL [Suspect]
     Indication: EPILEPSY

REACTIONS (3)
  - BRAIN OPERATION [None]
  - HYPERACUSIS [None]
  - TINNITUS [None]
